FAERS Safety Report 8129902-X (Version None)
Quarter: 2012Q1

REPORT INFORMATION
  Report Type: 
  Country: None (occurrence: None)
  Receive Date: 20120210
  Receipt Date: 20120126
  Transmission Date: 20120608
  Serious: Yes (Hospitalization)
  Sender: FDA-Public Use
  Company Number: TW-UCBSA-050429

PATIENT
  Age: 43 Year
  Sex: Female
  Weight: 60 kg

DRUGS (4)
  1. BACLOFEN [Concomitant]
     Indication: HEADACHE
     Dates: start: 20091118
  2. ACETAMINOPHEN W/ PROPOXYPHENE HCL [Concomitant]
     Indication: HEADACHE
     Dates: start: 20100503
  3. LEVETIRACETAM [Suspect]
     Indication: COMPLEX PARTIAL SEIZURES
     Dates: start: 20090922, end: 20110113
  4. TRILEPTAL [Suspect]
     Indication: COMPLEX PARTIAL SEIZURES
     Dates: start: 20040614, end: 20110128

REACTIONS (3)
  - THROMBOCYTOPENIA [None]
  - HYPONATRAEMIA [None]
  - ACUTE TONSILLITIS [None]
